FAERS Safety Report 5807949-3 (Version None)
Quarter: 2008Q3

REPORT INFORMATION
  Report Type: 
  Country: None (occurrence: None)
  Receive Date: 20080708
  Receipt Date: 20080623
  Transmission Date: 20090109
  Serious: Yes (Other)
  Sender: FDA-Public Use
  Company Number: DSM-2008-00591

PATIENT
  Age: 59 Year
  Sex: Female

DRUGS (4)
  1. OPENVAS        (OLMESARTAN MEDOXOMIL) [Suspect]
     Indication: HYPERTENSION
     Dosage: 40 MG (40 MG, 1 IN 1 D), ORAL
     Route: 048
     Dates: start: 20080525, end: 20080101
  2. APROVEL      (IRBESARTAN) (IRBESARTAN) [Concomitant]
  3. TORSEMIDE [Concomitant]
  4. CARVEDILOL [Concomitant]

REACTIONS (1)
  - CHEST DISCOMFORT [None]
